FAERS Safety Report 18071468 (Version 2)
Quarter: 2021Q4

REPORT INFORMATION
  Report Type: Report from Study
  Country: NL (occurrence: None)
  Receive Date: 20200727
  Receipt Date: 20211119
  Transmission Date: 20220303
  Serious: Yes (Hospitalization)
  Sender: FDA-Public Use
  Company Number: NL-ROCHE-2648199

PATIENT
  Age: 45 Year
  Sex: Female

DRUGS (4)
  1. PERTUZUMAB [Suspect]
     Active Substance: PERTUZUMAB
     Indication: HER2 positive breast cancer
     Dosage: DATE OF MOST RECENT DOSE OF PERTUZUMAB ADMINISTERED PRIOR TO SAE ONSET: 06/JUL/2020; D1
     Route: 042
     Dates: start: 20200320, end: 20210806
  2. TRASTUZUMAB [Suspect]
     Active Substance: TRASTUZUMAB
     Indication: HER2 positive breast cancer
     Dosage: DATE OF MOST RECENT DOSE ADMINISTERED OF TRASTUZUMAB PRIOR TO SAE ONSET: 06/JUL/2020; D1
     Route: 058
     Dates: start: 20200320, end: 20210806
  3. CARBOPLATIN [Suspect]
     Active Substance: CARBOPLATIN
     Indication: HER2 positive breast cancer
     Dosage: 6 AUC; D1, D8.?DATE OF MOST RECENT DOSE ADMINISTERED OF CARBOPLATIN PRIOR TO SAE ONSET: 06/JUL/2020.
     Route: 042
     Dates: start: 20200320, end: 20210806
  4. PACLITAXEL [Suspect]
     Active Substance: PACLITAXEL
     Indication: HER2 positive breast cancer
     Dosage: D1, D8.?DATE OF MOST RECENT DOSE ADMINISTERED OF PACLITAXEL PRIOR TO SAE ONSET: 13/JUL/2020
     Route: 042
     Dates: start: 20200320, end: 20210813

REACTIONS (1)
  - Hypokalaemia [Recovered/Resolved]

NARRATIVE: CASE EVENT DATE: 20200721
